FAERS Safety Report 5008699-6 (Version None)
Quarter: 2006Q2

REPORT INFORMATION
  Report Type: 
  Country: None (occurrence: None)
  Receive Date: 20060523
  Receipt Date: 20060504
  Transmission Date: 20061013
  Serious: Yes (Hospitalization)
  Sender: FDA-Public Use
  Company Number: DE-SANOFI-SYNTHELABO-A04200600486

PATIENT
  Sex: Female
  Weight: 72 kg

DRUGS (5)
  1. ELOXATIN [Suspect]
     Indication: COLON CANCER
     Route: 041
     Dates: start: 20060503, end: 20060503
  2. FOLINIC ACID [Concomitant]
     Indication: COLON CANCER
     Dosage: UNK
     Route: 041
  3. FLUOROURACIL [Concomitant]
     Indication: COLON CANCER
     Dosage: UNK
     Route: 041
  4. DEXAMETHASONE [Concomitant]
     Indication: PROPHYLAXIS OF NAUSEA AND VOMITING
     Route: 041
  5. KEVATRIL [Concomitant]
     Indication: PROPHYLAXIS OF NAUSEA AND VOMITING
     Route: 041

REACTIONS (5)
  - COUGH [None]
  - DYSAESTHESIA PHARYNX [None]
  - DYSPHONIA [None]
  - HYPERSENSITIVITY [None]
  - PRURITUS [None]
